FAERS Safety Report 22034938 (Version 1)
Quarter: 2023Q1

REPORT INFORMATION
  Report Type: Spontaneous
  Country: US (occurrence: US)
  Receive Date: 20230224
  Receipt Date: 20230224
  Transmission Date: 20230417
  Serious: No
  Sender: FDA-Public Use
  Company Number: US-REGENERON PHARMACEUTICALS, INC.-2023-020911

PATIENT
  Sex: Female

DRUGS (1)
  1. EVKEEZA [Suspect]
     Active Substance: EVINACUMAB-DGNB
     Indication: Type IIa hyperlipidaemia
     Dosage: UNK, MONTHLY
     Route: 042
     Dates: start: 20210702

REACTIONS (4)
  - Hypersomnia [Unknown]
  - Pain [Unknown]
  - Abdominal pain upper [Unknown]
  - Nausea [Unknown]
